FAERS Safety Report 7734558-1 (Version None)
Quarter: 2011Q3

REPORT INFORMATION
  Report Type: 
  Country: None (occurrence: None)
  Receive Date: 20110907
  Receipt Date: 20110901
  Transmission Date: 20111222
  Serious: Yes (Other)
  Sender: FDA-Public Use
  Company Number: JP-GLAXOSMITHKLINE-B0744503A

PATIENT
  Age: 73 Year
  Sex: Female

DRUGS (12)
  1. VALTREX [Suspect]
     Indication: HERPES ZOSTER
     Dosage: 3000MG PER DAY
     Route: 048
     Dates: end: 20110822
  2. CANDESARTAN CILEXETIL [Concomitant]
     Route: 048
  3. NOVORAPID [Concomitant]
     Route: 058
  4. ENALAPRIL MALEATE [Concomitant]
     Route: 048
  5. VOLTAREN [Suspect]
     Route: 065
  6. AMARYL [Concomitant]
     Route: 048
  7. EPADEL [Concomitant]
     Route: 048
  8. MAGMITT [Concomitant]
     Route: 048
  9. AMLODIPINE [Concomitant]
     Route: 048
  10. CRESTOR [Concomitant]
     Route: 048
  11. ADJUST A [Concomitant]
     Route: 048
  12. ASPIRIN [Concomitant]
     Route: 048

REACTIONS (1)
  - RENAL FAILURE ACUTE [None]
